FAERS Safety Report 20654203 (Version 1)
Quarter: 2022Q1

REPORT INFORMATION
  Report Type: Spontaneous
  Country: US (occurrence: None)
  Receive Date: 20220329
  Receipt Date: 20220329
  Transmission Date: 20220424
  Serious: No
  Sender: FDA-Public Use
  Company Number: None

PATIENT
  Age: 32 Year
  Sex: Male
  Weight: 95.25 kg

DRUGS (1)
  1. NURTEC ODT [Suspect]
     Active Substance: RIMEGEPANT SULFATE
     Indication: Migraine without aura
     Dosage: FREQUENCY : AS NEEDED;?
     Route: 048
     Dates: start: 20211222, end: 20220321

REACTIONS (2)
  - Somnolence [None]
  - Rash [None]

NARRATIVE: CASE EVENT DATE: 20220321
